FAERS Safety Report 25596390 (Version 1)
Quarter: 2025Q3

REPORT INFORMATION
  Report Type: Spontaneous
  Country: US (occurrence: US)
  Receive Date: 20250723
  Receipt Date: 20250723
  Transmission Date: 20251021
  Serious: Yes (Other)
  Sender: SAMSUNG BIOEPIS
  Company Number: US-SAMSUNG BIOEPIS-SB-2025-24771

PATIENT
  Sex: Female

DRUGS (2)
  1. INFLIXIMAB [Suspect]
     Active Substance: INFLIXIMAB
     Indication: Sarcoidosis
  2. INFLIXIMAB [Suspect]
     Active Substance: INFLIXIMAB

REACTIONS (3)
  - Acute kidney injury [Recovering/Resolving]
  - Adrenal insufficiency [Unknown]
  - Off label use [Unknown]
